FAERS Safety Report 5682040-8 (Version None)
Quarter: 2008Q1

REPORT INFORMATION
  Report Type: 
  Country: None (occurrence: None)
  Receive Date: 20080327
  Receipt Date: 20070411
  Transmission Date: 20080703
  Serious: No
  Sender: FDA-Public Use
  Company Number: US-BAYER-US-2007-012739

PATIENT
  Sex: Female

DRUGS (1)
  1. MIRENA [Suspect]
     Route: 015

REACTIONS (1)
  - OVARIAN CYST [None]
